FAERS Safety Report 19832187 (Version 1)
Quarter: 2021Q3

REPORT INFORMATION
  Report Type: Spontaneous
  Country: DE (occurrence: DE)
  Receive Date: 20210915
  Receipt Date: 20210915
  Transmission Date: 20211014
  Serious: Yes (Hospitalization)
  Sender: FDA-Public Use
  Company Number: DE-ACCORD-238606

PATIENT
  Age: 81 Year
  Sex: Female
  Weight: 59 kg

DRUGS (14)
  1. IRON [Concomitant]
     Active Substance: IRON
     Dosage: 100 MG, 1?0?0?0
     Route: 048
  2. TORASEMIDE [Concomitant]
     Active Substance: TORSEMIDE
     Dosage: 10 MG, 1?0?0?0
     Route: 048
  3. CANDESARTAN/HYDROCHLOROTHIAZIDE [Concomitant]
     Active Substance: CANDESARTAN CILEXETIL\HYDROCHLOROTHIAZIDE
     Dosage: 32/12.5 MG, 1?0?0?0
     Route: 048
  4. NEBIVOLOL. [Concomitant]
     Active Substance: NEBIVOLOL
     Dosage: 5 MG, 1?0?1?0
     Route: 048
  5. MACROGOL?1A PHARMA [Concomitant]
     Dosage: 0?0?1?0
     Route: 048
  6. AMITRIPTYLINE [Concomitant]
     Active Substance: AMITRIPTYLINE
     Dosage: 50 MG, 0?0?0?1
     Route: 048
  7. OXYCODONE/OXYCODONE HYDROCHLORIDE/OXYCODONE PECTINATE/OXYCODONE TEREPHTHALATE [Concomitant]
     Active Substance: OXYCODONE
     Dosage: 40 MG, 1?1?1?1
     Route: 048
  8. RANITIDINE. [Concomitant]
     Active Substance: RANITIDINE
     Dosage: 150 MG, 1?0?0?0
     Route: 048
  9. METAMIZOLE SODIUM [Concomitant]
     Active Substance: METAMIZOLE SODIUM
     Dosage: 500 MG, 1?1?1?1
     Route: 048
  10. APIXABAN [Suspect]
     Active Substance: APIXABAN
     Indication: PRODUCT USED FOR UNKNOWN INDICATION
     Dosage: 5 MG, 1?0?1?0
     Route: 048
  11. OPIPRAMOL/OPIPRAMOL HYDROCHLORIDE [Concomitant]
     Active Substance: OPIPRAMOL\OPIPRAMOL HYDROCHLORIDE
     Dosage: 50 MG, 1?1?1?1
     Route: 048
  12. AMLODIPINE [Concomitant]
     Active Substance: AMLODIPINE BESYLATE
     Dosage: 5 MG, 1?0?0?1
     Route: 048
  13. NIFEDIPINE. [Concomitant]
     Active Substance: NIFEDIPINE
     Dosage: 10 MG, 0.5?0?0.5?0
     Route: 048
  14. NEPRESOL [Concomitant]
     Dosage: 25 MG, 0.5?0?0.5?0
     Route: 048

REACTIONS (7)
  - Oedema peripheral [Unknown]
  - Decreased appetite [Unknown]
  - Asthenia [Unknown]
  - Faeces discoloured [Unknown]
  - Weight decreased [Unknown]
  - Fatigue [Unknown]
  - Faecaloma [Unknown]
